FAERS Safety Report 7512773-X (Version None)
Quarter: 2011Q2

REPORT INFORMATION
  Report Type: 
  Country: None (occurrence: None)
  Receive Date: 20110520
  Receipt Date: 20110511
  Transmission Date: 20111010
  Serious: Yes (Death)
  Sender: FDA-Public Use
  Company Number: JPI-P-014812

PATIENT
  Age: 63 Year
  Sex: Female

DRUGS (1)
  1. XYREM [Suspect]
     Indication: SLEEP DISORDER
     Dosage: 7 GM (3.5 GM, 2 IN 1 D), ORAL
     Route: 048
     Dates: start: 20050517, end: 20050701

REACTIONS (1)
  - DEATH [None]
